FAERS Safety Report 24551050 (Version 1)
Quarter: 2024Q4

REPORT INFORMATION
  Report Type: Spontaneous
  Country: IT (occurrence: IT)
  Receive Date: 20241025
  Receipt Date: 20241025
  Transmission Date: 20250114
  Serious: Yes (Other)
  Sender: PFIZER
  Company Number: None

PATIENT
  Age: 67 Year
  Sex: Male

DRUGS (10)
  1. TAVOR (LORAZEPAM) [Interacting]
     Active Substance: LORAZEPAM
     Dosage: UNK
     Route: 048
  2. BUPRENORPHINE [Suspect]
     Active Substance: BUPRENORPHINE
     Dosage: FREQ:1 H;5 MCG/H
     Route: 062
     Dates: start: 20240730, end: 20240802
  3. AMISULPRIDE [Interacting]
     Active Substance: AMISULPRIDE
     Dosage: UNK
     Route: 048
  4. CIPRALEX [Concomitant]
     Active Substance: ESCITALOPRAM OXALATE
     Dosage: UNK
     Route: 048
  5. ATORVASTATIN [Concomitant]
     Active Substance: ATORVASTATIN
     Dosage: UNK
     Route: 048
  6. EZETIMIBE [Concomitant]
     Active Substance: EZETIMIBE
     Dosage: UNK
     Route: 048
  7. BISOPROLOL FUMARATE [Concomitant]
     Active Substance: BISOPROLOL FUMARATE
     Dosage: FREQ:24 H
     Route: 048
  8. SILODOSIN [Concomitant]
     Active Substance: SILODOSIN
     Dosage: UNK
     Route: 048
  9. TOLTERODINA [TOLTERODINE] [Concomitant]
     Dosage: UNK
     Route: 048
  10. AMLODIPINE BESYLATE [Concomitant]
     Active Substance: AMLODIPINE BESYLATE
     Dosage: UNK
     Route: 048

REACTIONS (6)
  - Monoplegia [Unknown]
  - Vertigo [Recovering/Resolving]
  - Balance disorder [Recovering/Resolving]
  - Dysphonia [Unknown]
  - Dizziness [Unknown]
  - Drug interaction [Unknown]
